FAERS Safety Report 4844853-1 (Version None)
Quarter: 2005Q4

REPORT INFORMATION
  Report Type: 
  Country: None (occurrence: None)
  Receive Date: 20051205
  Receipt Date: 20051121
  Transmission Date: 20060501
  Serious: Yes (Hospitalization)
  Sender: FDA-Public Use
  Company Number: US-JNJFOC-20051105839

PATIENT
  Sex: Female
  Weight: 89.81 kg

DRUGS (3)
  1. ORTHO EVRA [Suspect]
     Indication: CONTRACEPTION
     Route: 062
  2. SEROQUEL [Concomitant]
  3. ZOLOFT [Concomitant]
     Indication: DEPRESSION

REACTIONS (5)
  - ABDOMINAL PAIN [None]
  - BREAST TENDERNESS [None]
  - INCREASED APPETITE [None]
  - MAJOR DEPRESSION [None]
  - SUICIDAL IDEATION [None]
